FAERS Safety Report 6027470-X (Version None)
Quarter: 2008Q4

REPORT INFORMATION
  Report Type: 
  Country: None (occurrence: None)
  Receive Date: 20081222
  Receipt Date: 20080918
  Transmission Date: 20090506
  Serious: No
  Sender: FDA-Public Use
  Company Number: US-WYE-H06057208

PATIENT
  Age: 59 Year
  Sex: Male
  Weight: 93.07 kg

DRUGS (4)
  1. PRISTIQ [Suspect]
     Indication: DEPRESSION
     Dosage: 50 MG 1X PER 1 DAY, ORAL
     Route: 048
     Dates: start: 20080915
  2. CLONAZEPAM [Concomitant]
  3. ENALAPRIL MALEATE W/HYDROCHLOROTIAZIDE (ENALAPRIL MALEATE/HYDROCHLOROT [Concomitant]
  4. AMLODIPINE BESYLATE [Concomitant]

REACTIONS (1)
  - NAUSEA [None]
